FAERS Safety Report 8326463-7 (Version None)
Quarter: 2012Q2

REPORT INFORMATION
  Report Type: 
  Country: None (occurrence: None)
  Receive Date: 20120501
  Receipt Date: 20120426
  Transmission Date: 20120825
  Serious: Yes (Other)
  Sender: FDA-Public Use
  Company Number: PHHY2010CA49337

PATIENT
  Sex: Female

DRUGS (3)
  1. SANDOSTATIN LAR [Suspect]
     Dosage: 30 MG, EVERY THREE WEEKS
     Route: 030
  2. SANDOSTATIN LAR [Suspect]
     Dosage: 30 MG, EVERY 4 WEEKS
     Route: 030
  3. SANDOSTATIN LAR [Suspect]
     Indication: CARCINOID TUMOUR
     Dosage: 30 MG, TIW
     Route: 030
     Dates: start: 20021020

REACTIONS (7)
  - DYSURIA [None]
  - URINARY INCONTINENCE [None]
  - BLOOD PRESSURE SYSTOLIC INCREASED [None]
  - ABDOMINAL PAIN [None]
  - CALCULUS URETERIC [None]
  - DIARRHOEA [None]
  - CONTUSION [None]
